FAERS Safety Report 20632981 (Version 1)
Quarter: 2022Q1

REPORT INFORMATION
  Report Type: Spontaneous
  Country: US (occurrence: US)
  Receive Date: 20220324
  Receipt Date: 20220324
  Transmission Date: 20220424
  Serious: No
  Sender: FDA-Public Use
  Company Number: US-UPSHER-SMITH LABORATORIES, LLC-2021USL00342

PATIENT
  Sex: Female
  Weight: 60.33 kg

DRUGS (4)
  1. PREVALITE [Suspect]
     Active Substance: CHOLESTYRAMINE
     Indication: Diarrhoea
     Dosage: UNK
     Dates: start: 2021
  2. LEVOTHYROXINE [Concomitant]
     Active Substance: LEVOTHYROXINE
  3. HIGH POTENCY MULTIVITAMIN [Concomitant]
  4. ESTRIOL 2MG/ESTRADIOL 0.25MG/ESTRONE 0.25MG/BHEA 5MG/TESTOSTERONE 0.75 [Concomitant]

REACTIONS (1)
  - Diarrhoea [Unknown]

NARRATIVE: CASE EVENT DATE: 20210101
